FAERS Safety Report 12374963 (Version 4)
Quarter: 2016Q4

REPORT INFORMATION
  Report Type: Spontaneous
  Country: US (occurrence: US)
  Receive Date: 20160517
  Receipt Date: 20161011
  Transmission Date: 20170207
  Serious: Yes (Hospitalization, Other)
  Sender: FDA-Public Use
  Company Number: US-BRISTOL-MYERS SQUIBB COMPANY-BMS-2016-037433

PATIENT
  Age: 59 Year
  Sex: Female

DRUGS (1)
  1. DAKLINZA [Suspect]
     Active Substance: DACLATASVIR
     Indication: PRODUCT USED FOR UNKNOWN INDICATION
     Dosage: 1 TAB, QD
     Route: 048

REACTIONS (6)
  - Fatigue [Unknown]
  - Abdominal pain [Recovered/Resolved]
  - Nausea [Unknown]
  - Vomiting [Unknown]
  - Paralysis [Unknown]
  - Eructation [Unknown]

NARRATIVE: CASE EVENT DATE: 20160925
